FAERS Safety Report 13753323 (Version 1)
Quarter: 2017Q3

REPORT INFORMATION
  Report Type: Spontaneous
  Country: NL (occurrence: NL)
  Receive Date: 20170713
  Receipt Date: 20170713
  Transmission Date: 20171127
  Serious: Yes (Hospitalization)
  Sender: FDA-Public Use
  Company Number: NL-TEVA-784557ACC

PATIENT
  Age: 72 Year
  Sex: Male
  Weight: 80 kg

DRUGS (2)
  1. AMIODARONE HCL TEVA [Suspect]
     Active Substance: AMIODARONE HYDROCHLORIDE
     Indication: ATRIAL FLUTTER
     Dosage: 200 MILLIGRAM DAILY;
     Route: 048
     Dates: start: 20070227
  2. FENPROCOUMON [Concomitant]
     Active Substance: PHENPROCOUMON
     Dosage: ACCORDING TO CALENDAR
     Route: 048
     Dates: start: 20130118

REACTIONS (10)
  - Diplopia [Recovering/Resolving]
  - Condition aggravated [None]
  - Blood thyroid stimulating hormone decreased [None]
  - Arrhythmia [None]
  - Thyroxine increased [None]
  - Renal impairment [Recovering/Resolving]
  - Dizziness [Recovering/Resolving]
  - Dysphonia [Recovering/Resolving]
  - Photosensitivity reaction [Recovering/Resolving]
  - Thyroid disorder [Recovering/Resolving]

NARRATIVE: CASE EVENT DATE: 20170106
